FAERS Safety Report 6830421-9 (Version None)
Quarter: 2010Q3

REPORT INFORMATION
  Report Type: 
  Country: None (occurrence: None)
  Receive Date: 20100712
  Receipt Date: 20100630
  Transmission Date: 20110219
  Serious: No
  Sender: FDA-Public Use
  Company Number: US-BIOGENIDEC-2010BI022671

PATIENT
  Age: 56 Year
  Sex: Female

DRUGS (1)
  1. TYSABRI [Suspect]
     Indication: MULTIPLE SCLEROSIS
     Route: 042
     Dates: start: 20090625

REACTIONS (7)
  - BLOOD POTASSIUM INCREASED [None]
  - CATARACT [None]
  - DEHYDRATION [None]
  - GLAUCOMA [None]
  - HEPATIC ENZYME ABNORMAL [None]
  - VISUAL IMPAIRMENT [None]
  - VITREOUS FLOATERS [None]
